FAERS Safety Report 9645355 (Version 1)
Quarter: 2013Q4

REPORT INFORMATION
  Report Type: Spontaneous
  Country: GB (occurrence: GB)
  Receive Date: 20131025
  Receipt Date: 20131025
  Transmission Date: 20140711
  Serious: Yes (Other)
  Sender: FDA-Public Use
  Company Number: GB-ASTRAZENECA-2013SE76445

PATIENT
  Age: 48 Year
  Sex: Male
  Weight: 78 kg

DRUGS (3)
  1. PROPOFOL [Suspect]
     Route: 042
     Dates: start: 20070530
  2. FENTANYL [Interacting]
     Route: 042
     Dates: start: 20070530
  3. CHAMPIX [Interacting]
     Route: 048
     Dates: start: 20070514

REACTIONS (3)
  - Drug interaction [Unknown]
  - Extra dose administered [Unknown]
  - Drug ineffective [Unknown]
